FAERS Safety Report 20561529 (Version 3)
Quarter: 2022Q2

REPORT INFORMATION
  Report Type: Spontaneous
  Country: US (occurrence: US)
  Receive Date: 20220307
  Receipt Date: 20220623
  Transmission Date: 20220720
  Serious: No
  Sender: FDA-Public Use
  Company Number: US-GLENMARK PHARMACEUTICALS-2022GMK070934

PATIENT

DRUGS (2)
  1. NORETHINDRONE ACETATE [Suspect]
     Active Substance: NORETHINDRONE ACETATE
     Indication: Menstruation irregular
     Dosage: 5 MILLIGRAM, OD
     Route: 048
     Dates: start: 201108, end: 202101
  2. NORETHINDRONE ACETATE [Suspect]
     Active Substance: NORETHINDRONE ACETATE
     Dosage: 5 MILLIGRAM, OD
     Route: 048
     Dates: start: 202106

REACTIONS (6)
  - Hyperhidrosis [Unknown]
  - Fall [Unknown]
  - Vertigo [Unknown]
  - Presyncope [Unknown]
  - Dizziness [Not Recovered/Not Resolved]
  - Headache [Not Recovered/Not Resolved]
